FAERS Safety Report 9530235 (Version 1)
Quarter: 2013Q3

REPORT INFORMATION
  Report Type: Spontaneous
  Country: MX (occurrence: MX)
  Receive Date: 20130917
  Receipt Date: 20130917
  Transmission Date: 20140515
  Serious: Yes (Hospitalization)
  Sender: FDA-Public Use
  Company Number: MX-B.I. PHARMACEUTICALS,INC./RIDGEFIELD-2013-MX-00287MX

PATIENT
  Age: 68 Year
  Sex: Female

DRUGS (1)
  1. TRAJENTA [Suspect]
     Indication: TYPE 2 DIABETES MELLITUS
     Dosage: 1-0-0 : 1 TAB DAILY
     Route: 048
     Dates: start: 20130820

REACTIONS (1)
  - Malaise [Not Recovered/Not Resolved]
